FAERS Safety Report 7959315-2 (Version None)
Quarter: 2011Q4

REPORT INFORMATION
  Report Type: 
  Country: None (occurrence: None)
  Receive Date: 20111130
  Receipt Date: 20111117
  Transmission Date: 20120403
  Serious: Yes (Hospitalization)
  Sender: FDA-Public Use
  Company Number: 2011S1001607

PATIENT
  Sex: Male

DRUGS (1)
  1. LIVALO [Suspect]
     Indication: BLOOD CHOLESTEROL INCREASED
     Dosage: 2 MG, 1X, PO
     Route: 048
     Dates: start: 20111103, end: 20111114

REACTIONS (2)
  - CHEST PAIN [None]
  - DYSPNOEA [None]
